FAERS Safety Report 9306829 (Version 1)
Quarter: 2013Q2

REPORT INFORMATION
  Report Type: Report from Study
  Country: US (occurrence: US)
  Receive Date: 20130523
  Receipt Date: 20130523
  Transmission Date: 20140414
  Serious: Yes (Other)
  Sender: FDA-Public Use
  Company Number: US-US-EMD SERONO, INC.-7212315

PATIENT
  Age: 65 Year
  Sex: Female

DRUGS (6)
  1. REBIF [Suspect]
     Indication: MULTIPLE SCLEROSIS
     Route: 058
     Dates: start: 20050511, end: 201301
  2. REBIF [Suspect]
     Route: 058
     Dates: start: 2013, end: 201304
  3. REBIF [Suspect]
     Route: 058
     Dates: start: 201305
  4. IBUPROFEN [Concomitant]
     Indication: PREMEDICATION
  5. PAXIL [Concomitant]
     Indication: DEPRESSION
  6. NORTRIPTYLINE                      /00006502/ [Concomitant]
     Indication: NERVE INJURY

REACTIONS (4)
  - Cataract [Recovering/Resolving]
  - Peripheral arterial occlusive disease [Recovered/Resolved]
  - Chronic obstructive pulmonary disease [Not Recovered/Not Resolved]
  - Depression [Recovered/Resolved]
